FAERS Safety Report 5601734-3 (Version None)
Quarter: 2008Q1

REPORT INFORMATION
  Report Type: 
  Country: None (occurrence: None)
  Receive Date: 20080124
  Receipt Date: 20080117
  Transmission Date: 20080703
  Serious: Yes (Hospitalization)
  Sender: FDA-Public Use
  Company Number: TR-ABBOTT-08P-161-0433847-00

PATIENT
  Age: 20 Year
  Sex: Female
  Weight: 85 kg

DRUGS (1)
  1. REDUCTIL 15MG [Suspect]
     Indication: WEIGHT CONTROL
     Route: 048
     Dates: start: 20080107

REACTIONS (3)
  - CONVERSION DISORDER [None]
  - SYNCOPE [None]
  - UNEVALUABLE EVENT [None]
